FAERS Safety Report 8033383-4 (Version None)
Quarter: 2012Q1

REPORT INFORMATION
  Report Type: 
  Country: None (occurrence: None)
  Receive Date: 20120110
  Receipt Date: 20120106
  Transmission Date: 20120608
  Serious: No
  Sender: FDA-Public Use
  Company Number: PHEH2012US000805

PATIENT
  Sex: Female
  Weight: 54.422 kg

DRUGS (2)
  1. CEFPROZIL [Concomitant]
     Indication: SINUSITIS
     Dosage: UNK UKN, UNK
  2. TASIGNA [Suspect]
     Indication: CHRONIC MYELOID LEUKAEMIA
     Dosage: 400 MG, BID
     Route: 048
     Dates: start: 20111117

REACTIONS (1)
  - RASH [None]
